FAERS Safety Report 6626221-5 (Version None)
Quarter: 2010Q1

REPORT INFORMATION
  Report Type: 
  Country: None (occurrence: None)
  Receive Date: 20100309
  Receipt Date: 20100309
  Transmission Date: 20100710
  Serious: Yes (Hospitalization)
  Sender: FDA-Public Use
  Company Number: None

PATIENT
  Age: 58 Year
  Sex: Male
  Weight: 58.64 kg

DRUGS (1)
  1. PREDNISONE [Suspect]
     Dates: start: 20090722, end: 20090722

REACTIONS (2)
  - DYSPHAGIA [None]
  - OESOPHAGEAL CANDIDIASIS [None]
